FAERS Safety Report 9103686 (Version 2)
Quarter: 2013Q1

REPORT INFORMATION
  Report Type: Spontaneous
  Country: US (occurrence: US)
  Receive Date: 20130219
  Receipt Date: 20130226
  Transmission Date: 20140127
  Serious: Yes (Hospitalization)
  Sender: FDA-Public Use
  Company Number: US-GILEAD-2013-0069694

PATIENT
  Age: 57 Year
  Sex: Female

DRUGS (2)
  1. LETAIRIS [Suspect]
     Indication: COR PULMONALE CHRONIC
     Dosage: 10 MG, QD
     Dates: start: 20130119
  2. LETAIRIS [Suspect]
     Dosage: 10 MG, UNK
     Dates: start: 20121220

REACTIONS (3)
  - Bronchitis [Unknown]
  - Nasal congestion [Unknown]
  - Nasopharyngitis [Unknown]
